FAERS Safety Report 22714110 (Version 3)
Quarter: 2023Q4

REPORT INFORMATION
  Report Type: Report from Study
  Country: US (occurrence: US)
  Receive Date: 20230718
  Receipt Date: 20231016
  Transmission Date: 20240109
  Serious: Yes (Other)
  Sender: FDA-Public Use
  Company Number: US-ABBVIE-5326642

PATIENT
  Sex: Male

DRUGS (1)
  1. SKYRIZI [Suspect]
     Active Substance: RISANKIZUMAB-RZAA
     Indication: Psoriasis
     Route: 058
     Dates: start: 20210121

REACTIONS (10)
  - Cerebrovascular accident [Not Recovered/Not Resolved]
  - Abnormal weight gain [Not Recovered/Not Resolved]
  - Arthritis [Unknown]
  - Psoriasis [Recovered/Resolved]
  - Knee arthroplasty [Recovering/Resolving]
  - Arthralgia [Not Recovered/Not Resolved]
  - Peripheral swelling [Unknown]
  - Psoriasis [Not Recovered/Not Resolved]
  - Joint swelling [Unknown]
  - Swelling of eyelid [Not Recovered/Not Resolved]

NARRATIVE: CASE EVENT DATE: 20220101
